FAERS Safety Report 7785151-6 (Version None)
Quarter: 2011Q3

REPORT INFORMATION
  Report Type: 
  Country: None (occurrence: None)
  Receive Date: 20110929
  Receipt Date: 20110921
  Transmission Date: 20111222
  Serious: No
  Sender: FDA-Public Use
  Company Number: US-BIOGENIDEC-2011BI036334

PATIENT
  Sex: Female

DRUGS (2)
  1. TYSABRI [Suspect]
     Indication: MULTIPLE SCLEROSIS
     Route: 042
     Dates: start: 20100621
  2. BLOOD PRESSURE MED (NOS) [Concomitant]

REACTIONS (6)
  - HEART RATE DECREASED [None]
  - URINARY TRACT INFECTION [None]
  - ASTHENIA [None]
  - WEIGHT DECREASED [None]
  - EYE DISORDER [None]
  - PAIN IN EXTREMITY [None]
